FAERS Safety Report 16465231 (Version 1)
Quarter: 2019Q2

REPORT INFORMATION
  Report Type: Spontaneous
  Country: US (occurrence: US)
  Receive Date: 20190621
  Receipt Date: 20190621
  Transmission Date: 20190711
  Serious: Yes (Other)
  Sender: FDA-Public Use
  Company Number: US-MALLINCKRODT-T201904494

PATIENT
  Sex: Male

DRUGS (1)
  1. UVADEX [Suspect]
     Active Substance: METHOXSALEN
     Indication: GRAFT VERSUS HOST DISEASE IN EYE
     Dosage: UNK, EXTRACORPOREAL
     Route: 050

REACTIONS (4)
  - Cataract [Unknown]
  - Product use in unapproved indication [Unknown]
  - Cataract operation [Unknown]
  - Photophobia [Unknown]

NARRATIVE: CASE EVENT DATE: 2019
